FAERS Safety Report 9290052 (Version 1)
Quarter: 2013Q2

REPORT INFORMATION
  Report Type: Spontaneous
  Country: CN (occurrence: None)
  Receive Date: 20130510
  Receipt Date: 20130510
  Transmission Date: 20140414
  Serious: Yes (Hospitalization, Other)
  Sender: FDA-Public Use
  Company Number: 2013P1005363

PATIENT
  Age: 43 Year
  Sex: Male

DRUGS (2)
  1. RISPERIDONE [Suspect]
     Indication: SCHIZOPHRENIA
  2. CHLORPROMAZINE [Concomitant]

REACTIONS (5)
  - Treatment noncompliance [None]
  - Psychotic disorder [None]
  - Hallucination, auditory [None]
  - Persecutory delusion [None]
  - Psychomotor hyperactivity [None]
